FAERS Safety Report 13968141 (Version 1)
Quarter: 2017Q3

REPORT INFORMATION
  Report Type: Spontaneous
  Country: US (occurrence: US)
  Receive Date: 20170914
  Receipt Date: 20170914
  Transmission Date: 20171128
  Serious: Yes (Other)
  Sender: FDA-Public Use
  Company Number: US-LPDUSPRD-20171015

PATIENT
  Age: 44 Year
  Sex: Female
  Weight: 102.06 kg

DRUGS (1)
  1. INJECTAFER [Suspect]
     Active Substance: FERRIC CARBOXYMALTOSE
     Dosage: 750 MG DULITED 250ML NSS
     Route: 042

REACTIONS (5)
  - Dyspnoea [Unknown]
  - Urticaria [Unknown]
  - Cold sweat [Unknown]
  - Dizziness [Unknown]
  - Pruritus [Unknown]
